FAERS Safety Report 9487194 (Version 2)
Quarter: 2013Q3

REPORT INFORMATION
  Report Type: Spontaneous
  Country: US (occurrence: US)
  Receive Date: 20130829
  Receipt Date: 20130913
  Transmission Date: 20140515
  Serious: Yes (Other)
  Sender: FDA-Public Use
  Company Number: US-TEVA-428315USA

PATIENT
  Age: 39 Year
  Sex: Female
  Weight: 78.54 kg

DRUGS (1)
  1. PARAGARD 380A [Suspect]
     Indication: CONTRACEPTION
     Route: 015
     Dates: start: 20120625

REACTIONS (3)
  - Embedded device [Recovered/Resolved]
  - Device dislocation [Unknown]
  - Vulvovaginal discomfort [Not Recovered/Not Resolved]
